FAERS Safety Report 18229581 (Version 1)
Quarter: 2020Q3

REPORT INFORMATION
  Report Type: Spontaneous
  Country: CA (occurrence: CA)
  Receive Date: 20200903
  Receipt Date: 20200903
  Transmission Date: 20201103
  Serious: Yes (Life-Threatening, Hospitalization)
  Sender: FDA-Public Use
  Company Number: CA-MYLANLABS-2020M1076251

PATIENT
  Age: 4 Year
  Sex: Male

DRUGS (15)
  1. ALBUMIN [Suspect]
     Active Substance: ALBUMIN HUMAN
     Indication: BUDD-CHIARI SYNDROME
     Route: 040
  2. ALBUMIN [Suspect]
     Active Substance: ALBUMIN HUMAN
     Indication: HAEMODYNAMIC INSTABILITY
  3. SODIUM BICARBONATE. [Suspect]
     Active Substance: SODIUM BICARBONATE
     Indication: HAEMODYNAMIC INSTABILITY
  4. HEPARIN [Suspect]
     Active Substance: HEPARIN SODIUM
     Indication: HEPATIC VEIN THROMBOSIS
     Dosage: 1300 INTERNATIONAL UNIT BOLUS
  5. HEPARIN [Suspect]
     Active Substance: HEPARIN SODIUM
     Indication: BUDD-CHIARI SYNDROME
     Dosage: INFUSION
  6. HEPARIN [Suspect]
     Active Substance: HEPARIN SODIUM
     Indication: ANTICOAGULANT THERAPY
  7. PHENYLEPHRINE [Suspect]
     Active Substance: PHENYLEPHRINE HYDROCHLORIDE
     Indication: BUDD-CHIARI SYNDROME
     Dosage: BOLUS
  8. SODIUM BICARBONATE. [Suspect]
     Active Substance: SODIUM BICARBONATE
     Indication: BUDD-CHIARI SYNDROME
     Dosage: UNK
     Route: 040
  9. HEPARIN [Suspect]
     Active Substance: HEPARIN SODIUM
     Indication: HAEMODYNAMIC INSTABILITY
  10. NORMAL SALINE [Suspect]
     Active Substance: SODIUM CHLORIDE
     Indication: BUDD-CHIARI SYNDROME
     Dosage: UNK
     Route: 040
  11. EPINEPHRINE. [Suspect]
     Active Substance: EPINEPHRINE
     Indication: BUDD-CHIARI SYNDROME
     Dosage: BOLUS
  12. EPINEPHRINE. [Suspect]
     Active Substance: EPINEPHRINE
     Indication: HAEMODYNAMIC INSTABILITY
     Dosage: INFUSION
  13. ENOXAPARIN [Concomitant]
     Active Substance: ENOXAPARIN
     Indication: ANTICOAGULANT THERAPY
     Dosage: UNK
     Route: 065
  14. PHENYLEPHRINE [Suspect]
     Active Substance: PHENYLEPHRINE HYDROCHLORIDE
     Indication: HAEMODYNAMIC INSTABILITY
  15. NORMAL SALINE [Suspect]
     Active Substance: SODIUM CHLORIDE
     Indication: HAEMODYNAMIC INSTABILITY

REACTIONS (1)
  - Therapy non-responder [Unknown]
